FAERS Safety Report 14262274 (Version 6)
Quarter: 2018Q2

REPORT INFORMATION
  Report Type: Spontaneous
  Country: CZ (occurrence: CZ)
  Receive Date: 20171208
  Receipt Date: 20180604
  Transmission Date: 20180711
  Serious: Yes (Life-Threatening, Hospitalization, Other)
  Sender: FDA-Public Use
  Company Number: CZ-ACCORD-061753

PATIENT
  Age: 82 Year
  Sex: Female

DRUGS (21)
  1. PHENYTOIN. [Suspect]
     Active Substance: PHENYTOIN
     Indication: STATUS EPILEPTICUS
     Dosage: 20 MG/KG, UNK
     Route: 042
  2. GLIQUIDONE [Concomitant]
     Active Substance: GLIQUIDONE
  3. AMOXICILLIN. [Suspect]
     Active Substance: AMOXICILLIN
     Indication: PNEUMONIA
     Route: 048
  4. LISALGIL [Suspect]
     Active Substance: METAMIZOLE SODIUM
     Indication: PAIN
     Route: 048
  5. KAPIDIN [Concomitant]
     Active Substance: LERCANIDIPINE HYDROCHLORIDE
  6. LEVETIRACETAM. [Suspect]
     Active Substance: LEVETIRACETAM
     Indication: SEIZURE
     Dosage: 40 MG/KG
  7. PARACETAMOL [Suspect]
     Active Substance: ACETAMINOPHEN
     Indication: PAIN
     Route: 048
  8. MILURIT [Suspect]
     Active Substance: ALLOPURINOL
     Indication: GOUT
     Route: 048
  9. GODASAL [Concomitant]
     Active Substance: ASPIRIN\GLYCINE
  10. EUTHYROX [Concomitant]
     Active Substance: LEVOTHYROXINE SODIUM
  11. CYNT [Concomitant]
  12. TRITACE [Concomitant]
     Active Substance: RAMIPRIL
  13. LEVETIRACETAM. [Suspect]
     Active Substance: LEVETIRACETAM
     Indication: GENERALISED TONIC-CLONIC SEIZURE
     Dosage: 3000 MG, DAILY
  14. CEFTRIAXONE. [Suspect]
     Active Substance: CEFTRIAXONE
     Indication: PNEUMONIA
     Route: 048
  15. VALPROIC ACID. [Suspect]
     Active Substance: VALPROIC ACID
     Indication: GENERALISED TONIC-CLONIC SEIZURE
     Route: 042
  16. PROPOFOL. [Suspect]
     Active Substance: PROPOFOL
     Indication: SEIZURE
  17. VASILIP [Concomitant]
     Active Substance: SIMVASTATIN
  18. FLUCONAZOLE. [Suspect]
     Active Substance: FLUCONAZOLE
     Indication: PNEUMONIA
     Route: 048
  19. DIAZEPAM. [Suspect]
     Active Substance: DIAZEPAM
     Indication: GENERALISED TONIC-CLONIC SEIZURE
     Route: 042
  20. BUSCO IBUPROFEN [Suspect]
     Active Substance: IBUPROFEN
     Indication: PAIN
     Route: 048
  21. LOKREN [Concomitant]
     Active Substance: BETAXOLOL HYDROCHLORIDE

REACTIONS (4)
  - Drug ineffective [Unknown]
  - Pneumonia [Recovering/Resolving]
  - Stevens-Johnson syndrome [Recovered/Resolved]
  - Status epilepticus [Recovering/Resolving]
